FAERS Safety Report 6428082-6 (Version None)
Quarter: 2009Q4

REPORT INFORMATION
  Report Type: 
  Country: None (occurrence: None)
  Receive Date: 20091105
  Receipt Date: 20091026
  Transmission Date: 20100525
  Serious: Yes (Hospitalization, Other)
  Sender: FDA-Public Use
  Company Number: US-CELGENEUS-163-21880-09090791

PATIENT
  Sex: Male

DRUGS (16)
  1. REVLIMID [Suspect]
     Indication: MULTIPLE MYELOMA
     Route: 048
     Dates: start: 20080901, end: 20090901
  2. REVLIMID [Suspect]
     Route: 048
     Dates: start: 20080501, end: 20080101
  3. MULTI-VITAMINS [Concomitant]
     Indication: DRUG USE FOR UNKNOWN INDICATION
     Route: 065
  4. ASPIRIN [Concomitant]
     Indication: DRUG USE FOR UNKNOWN INDICATION
     Route: 065
  5. ACYCLOVIR [Concomitant]
     Indication: DRUG USE FOR UNKNOWN INDICATION
     Route: 065
  6. CALCIUM CITRATE [Concomitant]
     Indication: DRUG USE FOR UNKNOWN INDICATION
     Route: 065
  7. EVOXAC [Concomitant]
     Indication: DRUG USE FOR UNKNOWN INDICATION
     Route: 065
  8. LOVAZA [Concomitant]
     Indication: DRUG USE FOR UNKNOWN INDICATION
     Route: 065
  9. TESTOSTERONE [Concomitant]
     Indication: DRUG USE FOR UNKNOWN INDICATION
     Route: 062
  10. VITAMIN B6 [Concomitant]
     Indication: DRUG USE FOR UNKNOWN INDICATION
     Route: 065
  11. OXYCONTIN [Concomitant]
     Indication: DRUG USE FOR UNKNOWN INDICATION
     Route: 065
  12. FLUCONAZOLE [Concomitant]
     Indication: DRUG USE FOR UNKNOWN INDICATION
     Route: 065
  13. ZOMETA [Concomitant]
     Indication: DRUG USE FOR UNKNOWN INDICATION
     Route: 051
  14. NYSTATIN [Concomitant]
     Indication: DRUG USE FOR UNKNOWN INDICATION
     Route: 065
  15. NEURONTIN [Concomitant]
     Indication: DRUG USE FOR UNKNOWN INDICATION
     Route: 065
  16. FENTANYL-100 [Concomitant]
     Indication: DRUG USE FOR UNKNOWN INDICATION
     Route: 062

REACTIONS (3)
  - IMPAIRED HEALING [None]
  - SEPSIS [None]
  - SKIN ULCER [None]
